FAERS Safety Report 5318369-2 (Version None)
Quarter: 2007Q1

REPORT INFORMATION
  Report Type: 
  Country: None (occurrence: None)
  Receive Date: 20070130
  Receipt Date: 20061005
  Transmission Date: 20070707
  Serious: No
  Sender: FDA-Public Use
  Company Number: 200618354US

PATIENT
  Age: 62 Year
  Sex: Female

DRUGS (5)
  1. KETEK [Suspect]
     Indication: LYME DISEASE
     Dosage: 800 MG QD
     Dates: start: 20041101, end: 20050901
  2. WELLBUTRIN [Concomitant]
  3. ESTRACE [Concomitant]
  4. MOBIC [Concomitant]
  5. HERBAL VITAMINS [Concomitant]

REACTIONS (7)
  - ALOPECIA [None]
  - ARTHRITIS [None]
  - EMOTIONAL DISTRESS [None]
  - HEPATIC ENZYME INCREASED [None]
  - LIGAMENT RUPTURE [None]
  - PAIN [None]
  - SKIN BURNING SENSATION [None]
